FAERS Safety Report 19295637 (Version 1)
Quarter: 2021Q2

REPORT INFORMATION
  Report Type: Spontaneous
  Country: FR (occurrence: FR)
  Receive Date: 20210524
  Receipt Date: 20210524
  Transmission Date: 20210717
  Serious: Yes (Other)
  Sender: FDA-Public Use
  Company Number: NVSC2021FR110480

PATIENT
  Age: 87 Year
  Sex: Male

DRUGS (3)
  1. TAZOBACTAM [Suspect]
     Active Substance: TAZOBACTAM
     Indication: CELLULITIS
     Dosage: 1500 MG, QD
     Route: 041
     Dates: start: 20210320, end: 20210325
  2. CLINDAMYCIN HYDROCHLORIDE. [Suspect]
     Active Substance: CLINDAMYCIN HYDROCHLORIDE
     Indication: CELLULITIS
     Dosage: 1800 MG, QD
     Route: 041
     Dates: start: 20210320, end: 20210325
  3. PIPERACILLINE [Suspect]
     Active Substance: PIPERACILLIN SODIUM
     Indication: CELLULITIS
     Dosage: 12 G, QD
     Route: 041
     Dates: start: 20210320, end: 20210325

REACTIONS (1)
  - Acute kidney injury [Recovered/Resolved]

NARRATIVE: CASE EVENT DATE: 20210325
